FAERS Safety Report 18581049 (Version 1)
Quarter: 2020Q4

REPORT INFORMATION
  Report Type: Other
  Country: GB (occurrence: GB)
  Receive Date: 20201204
  Receipt Date: 20201204
  Transmission Date: 20210114
  Serious: Yes (Other)
  Sender: FDA-Public Use
  Company Number: GB-STRIDES ARCOLAB LIMITED-2020SP014874

PATIENT
  Sex: Female

DRUGS (16)
  1. BICNU [Suspect]
     Active Substance: CARMUSTINE
     Indication: NON-HODGKIN^S LYMPHOMA RECURRENT
     Dosage: UNK
     Route: 065
  2. ONCOVIN [Suspect]
     Active Substance: VINCRISTINE SULFATE
     Indication: NON-HODGKIN^S LYMPHOMA RECURRENT
     Dosage: UNK
     Route: 065
  3. DAUNOMYCIN [DAUNORUBICIN] [Suspect]
     Active Substance: DAUNORUBICIN
     Indication: NON-HODGKIN^S LYMPHOMA RECURRENT
     Dosage: UNK
     Route: 065
  4. ARA-C [Suspect]
     Active Substance: CYTARABINE
     Indication: NON-HODGKIN^S LYMPHOMA RECURRENT
     Dosage: UNK
     Route: 065
  5. ONKOTRONE [Suspect]
     Active Substance: MITOXANTRONE HYDROCHLORIDE
     Indication: NON-HODGKIN^S LYMPHOMA RECURRENT
     Dosage: UNK, FMD REGIMEN, SOLUTION FOR INJECTION
     Route: 065
  6. CYCLOPHOSPHAMIDE MONOHYDRATE [Suspect]
     Active Substance: CYCLOPHOSPHAMIDE
     Indication: NON-HODGKIN^S LYMPHOMA RECURRENT
     Dosage: UNK, POWDER FOR SOLUTION FOR INJECTION
     Route: 065
  7. FLUDARABINE [Suspect]
     Active Substance: FLUDARABINE PHOSPHATE
     Indication: NON-HODGKIN^S LYMPHOMA RECURRENT
     Dosage: UNK, FMD REGIMEN
     Route: 065
  8. ETOPOSIDE. [Suspect]
     Active Substance: ETOPOSIDE
     Indication: NON-HODGKIN^S LYMPHOMA RECURRENT
     Dosage: UNK
     Route: 065
  9. PREDNISOLONE. [Suspect]
     Active Substance: PREDNISOLONE
     Dosage: UNK, COMBINATION THERAPY
     Route: 065
  10. CHLORAMBUCIL [Suspect]
     Active Substance: CHLORAMBUCIL
     Indication: NON-HODGKIN^S LYMPHOMA
     Dosage: UNK, MONOTHERAPY
     Route: 065
  11. CYCLOPHOSPHAMIDE MONOHYDRATE [Suspect]
     Active Substance: CYCLOPHOSPHAMIDE
     Dosage: UNK, COMBINATION THERAPY, POWDER FOR SOLUTION FOR INJECTION
     Route: 065
  12. RITUXIMAB. [Suspect]
     Active Substance: RITUXIMAB
     Indication: NON-HODGKIN^S LYMPHOMA RECURRENT
     Dosage: UNK
     Route: 065
  13. DEXAMETHASONE. [Suspect]
     Active Substance: DEXAMETHASONE
     Indication: NON-HODGKIN^S LYMPHOMA RECURRENT
     Dosage: UNK, FMD REGIMEN
     Route: 065
  14. CHLORAMBUCIL [Suspect]
     Active Substance: CHLORAMBUCIL
     Indication: NON-HODGKIN^S LYMPHOMA RECURRENT
     Dosage: UNK, COMBINATION THERAPY
     Route: 065
  15. MELPHALAN. [Suspect]
     Active Substance: MELPHALAN
     Indication: NON-HODGKIN^S LYMPHOMA RECURRENT
     Dosage: UNK
     Route: 065
  16. PREDNISOLONE. [Suspect]
     Active Substance: PREDNISOLONE
     Indication: NON-HODGKIN^S LYMPHOMA RECURRENT
     Dosage: UNK
     Route: 065

REACTIONS (3)
  - Drug ineffective [Unknown]
  - Hypogammaglobulinaemia [Unknown]
  - Lymphopenia [Unknown]
